FAERS Safety Report 23483680 (Version 2)
Quarter: 2024Q1

REPORT INFORMATION
  Report Type: Spontaneous
  Country: US (occurrence: US)
  Receive Date: 20240205
  Receipt Date: 20240229
  Transmission Date: 20240410
  Serious: No
  Sender: FDA-Public Use
  Company Number: US-MYLANLABS-2024M1008087

PATIENT
  Age: 5 Year
  Sex: Female

DRUGS (2)
  1. METHYLPHENIDATE [Suspect]
     Active Substance: METHYLPHENIDATE
     Indication: Attention deficit hyperactivity disorder
     Dosage: 10 MILLIGRAM
     Route: 062
  2. RITALIN [Concomitant]
     Active Substance: METHYLPHENIDATE HYDROCHLORIDE
     Indication: Product used for unknown indication
     Dosage: UNK
     Route: 048

REACTIONS (10)
  - Application site pruritus [Unknown]
  - Application site pain [Unknown]
  - Aggression [Unknown]
  - Skin irritation [Unknown]
  - Behaviour disorder [Unknown]
  - Impulsive behaviour [Unknown]
  - Drug ineffective [Unknown]
  - Therapeutic response changed [Unknown]
  - Product use issue [Unknown]
  - Wrong technique in product usage process [Unknown]
